APPROVED DRUG PRODUCT: MARAVIROC
Active Ingredient: MARAVIROC
Strength: 150MG
Dosage Form/Route: TABLET;ORAL
Application: A217880 | Product #001 | TE Code: AB
Applicant: NAVINTA LLC
Approved: May 13, 2025 | RLD: No | RS: No | Type: RX